FAERS Safety Report 4951218-0 (Version None)
Quarter: 2006Q1

REPORT INFORMATION
  Report Type: 
  Country: None (occurrence: None)
  Receive Date: 20060313
  Receipt Date: 20060302
  Transmission Date: 20060701
  Serious: Yes (Other)
  Sender: FDA-Public Use
  Company Number: 200515036BCC

PATIENT
  Age: 34 Year
  Sex: Male
  Weight: 74.8435 kg

DRUGS (5)
  1. ALEVE [Suspect]
     Indication: MYALGIA
     Dosage: SEE IMAGE
     Route: 048
     Dates: start: 20050101
  2. ALEVE [Suspect]
     Indication: TENSION
     Dosage: SEE IMAGE
     Route: 048
     Dates: start: 20050101
  3. ALEVE [Suspect]
     Indication: MYALGIA
     Dosage: SEE IMAGE
     Route: 048
     Dates: start: 20051211
  4. ALEVE [Suspect]
     Indication: TENSION
     Dosage: SEE IMAGE
     Route: 048
     Dates: start: 20051211
  5. . [Concomitant]

REACTIONS (19)
  - ANXIETY [None]
  - ASTHENIA [None]
  - BLOOD GLUCOSE DECREASED [None]
  - DILATATION ATRIAL [None]
  - DYSARTHRIA [None]
  - FATIGUE [None]
  - FEELING ABNORMAL [None]
  - GRAND MAL CONVULSION [None]
  - HYPERTENSION [None]
  - HYPERTONIA [None]
  - IRRITABILITY [None]
  - MUSCLE TIGHTNESS [None]
  - PAIN IN EXTREMITY [None]
  - PROTEIN URINE PRESENT [None]
  - PYREXIA [None]
  - RED BLOOD CELLS URINE POSITIVE [None]
  - SHOULDER PAIN [None]
  - SINUS TACHYCARDIA [None]
  - TENSION [None]
